FAERS Safety Report 13081227 (Version 1)
Quarter: 2017Q1

REPORT INFORMATION
  Report Type: Spontaneous
  Country: US (occurrence: US)
  Receive Date: 20170103
  Receipt Date: 20170103
  Transmission Date: 20170428
  Serious: Yes (Life-Threatening, Hospitalization, Other)
  Sender: FDA-Public Use
  Company Number: US-HERITAGE PHARMACEUTICALS-2016HTG00315

PATIENT
  Age: 48 Year
  Sex: Female

DRUGS (1)
  1. HYDROXYZINE [Suspect]
     Active Substance: HYDROXYZINE HYDROCHLORIDE
     Route: 065

REACTIONS (4)
  - Suicide attempt [Recovered/Resolved]
  - Overdose [Recovered/Resolved]
  - Atrial fibrillation [Recovered/Resolved]
  - Thyrotoxic crisis [Recovered/Resolved]
